FAERS Safety Report 5612409-9 (Version None)
Quarter: 2008Q1

REPORT INFORMATION
  Report Type: 
  Country: None (occurrence: None)
  Receive Date: 20080204
  Receipt Date: 20080121
  Transmission Date: 20080703
  Serious: Yes (Hospitalization)
  Sender: FDA-Public Use
  Company Number: JP-MERCK-0801USA06185

PATIENT
  Age: 86 Year
  Sex: Female

DRUGS (9)
  1. ZETIA [Suspect]
     Indication: HYPERCHOLESTEROLAEMIA
     Route: 048
     Dates: start: 20070915, end: 20071216
  2. RISEDRONATE SODIUM [Concomitant]
     Route: 065
  3. OCTOTIAMINE [Concomitant]
     Route: 065
  4. SENNA [Concomitant]
     Route: 065
  5. SENNOSIDES [Concomitant]
     Route: 065
  6. ASPIRIN [Concomitant]
     Route: 065
  7. REBAMIPIDE [Concomitant]
     Route: 065
  8. AMBROXOL HYDROCHLORIDE [Concomitant]
     Route: 065
  9. ESTAZOLAM [Concomitant]
     Route: 065

REACTIONS (1)
  - ILEUS [None]
